FAERS Safety Report 14832893 (Version 2)
Quarter: 2018Q2

REPORT INFORMATION
  Report Type: Spontaneous
  Country: ES (occurrence: ES)
  Receive Date: 20180501
  Receipt Date: 20180510
  Transmission Date: 20180711
  Serious: Yes (Hospitalization)
  Sender: FDA-Public Use
  Company Number: ES-LPDUSPRD-20180685

PATIENT
  Age: 60 Year
  Sex: Male

DRUGS (6)
  1. ERYTHROPOIETIN ALFA [Suspect]
     Active Substance: ERYTHROPOIETIN
     Dosage: (5000 IU,1 IN 1 WK)
     Route: 065
  2. BASILIXIMAB [Concomitant]
     Active Substance: BASILIXIMAB
     Dosage: UNKNOWN
     Route: 065
  3. MYCOPHENOLATE MOFETIL. [Concomitant]
     Active Substance: MYCOPHENOLATE MOFETIL
     Dosage: UNKNOWN
     Route: 065
  4. TACROLIMUS. [Concomitant]
     Active Substance: TACROLIMUS
     Dosage: UNKNOWN
     Route: 065
  5. VENOFER [Suspect]
     Active Substance: IRON SUCROSE
     Dosage: 100 MG,1 IN 1 -2)
     Route: 042
     Dates: start: 2013
  6. DARBEPOETIN ALFA [Concomitant]
     Active Substance: DARBEPOETIN ALFA
     Dosage: UNKNOWN
     Route: 065

REACTIONS (5)
  - Diabetes mellitus [Unknown]
  - Renal tubular necrosis [Unknown]
  - Pancreatic disorder [Unknown]
  - Haemochromatosis [Unknown]
  - Malaise [Unknown]
